FAERS Safety Report 4381155-4 (Version None)
Quarter: 2004Q2

REPORT INFORMATION
  Report Type: 
  Country: None (occurrence: None)
  Receive Date: 20040621
  Receipt Date: 20040409
  Transmission Date: 20050107
  Serious: Yes (Other)
  Sender: FDA-Public Use
  Company Number: PHRM2004FR01539

PATIENT
  Age: 33 Year
  Sex: Male
  Weight: 64 kg

DRUGS (5)
  1. LAMISIL [Suspect]
     Indication: NAIL TINEA
     Dosage: 250 MG, QD
     Route: 048
     Dates: start: 20030319, end: 20040313
  2. REVIA [Suspect]
     Indication: ALCOHOL DETOXIFICATION
     Dosage: UNK, UNK
     Route: 048
     Dates: start: 20020131, end: 20030613
  3. SOLIAN [Suspect]
     Dosage: 500 MG/DAY
     Dates: start: 20020131
  4. SERESTA [Suspect]
     Dosage: 75 MG/DAY
     Route: 048
     Dates: start: 20020131
  5. TRIHEXYPHENIDYL HCL [Concomitant]
     Dosage: 5 MG, QD
     Route: 048
     Dates: start: 20020131

REACTIONS (3)
  - ASTHENIA [None]
  - BLOOD CREATINE PHOSPHOKINASE INCREASED [None]
  - MYALGIA [None]
